FAERS Safety Report 17508567 (Version 1)
Quarter: 2020Q1

REPORT INFORMATION
  Report Type: Spontaneous
  Country: US (occurrence: US)
  Receive Date: 20200305
  Receipt Date: 20200305
  Transmission Date: 20200409
  Serious: Yes (Hospitalization)
  Sender: FDA-Public Use
  Company Number: None

PATIENT
  Age: 51 Year
  Sex: Male

DRUGS (7)
  1. TADALAFIL. [Suspect]
     Active Substance: TADALAFIL
     Indication: PRODUCT USED FOR UNKNOWN INDICATION
     Route: 048
     Dates: start: 20180928
  2. WARFARIN [Concomitant]
     Active Substance: WARFARIN
  3. METOPORLOL [Concomitant]
  4. SPIRONOLACT [Concomitant]
     Active Substance: SPIRONOLACTONE
  5. DOXYCYCL HYC [Concomitant]
  6. BUMETANIDE. [Concomitant]
     Active Substance: BUMETANIDE
  7. METOLAZONE. [Concomitant]
     Active Substance: METOLAZONE

REACTIONS (1)
  - Localised infection [None]

NARRATIVE: CASE EVENT DATE: 20200301
